FAERS Safety Report 10487656 (Version 6)
Quarter: 2015Q3

REPORT INFORMATION
  Report Type: Spontaneous
  Country: US (occurrence: US)
  Receive Date: 20141001
  Receipt Date: 20150702
  Transmission Date: 20151125
  Serious: Yes (Hospitalization, Disabling)
  Sender: FDA-Public Use
  Company Number: US-BAYER-2014-145579

PATIENT
  Age: 35 Year
  Sex: Female
  Weight: 90.7 kg

DRUGS (3)
  1. MIRENA [Suspect]
     Active Substance: LEVONORGESTREL
     Indication: CONTRACEPTION
     Dosage: 20 MCG/24HR, CONT
     Route: 015
     Dates: start: 20090806, end: 20140724
  2. MACROBID [Concomitant]
     Active Substance: NITROFURANTOIN\NITROFURANTOIN MONOHYDRATE
  3. POLY-VI-SOL [Concomitant]

REACTIONS (20)
  - Deformity [None]
  - Injury [None]
  - Device difficult to use [None]
  - Anxiety [None]
  - Activities of daily living impaired [None]
  - Premature delivery [None]
  - Drug ineffective [None]
  - Pain [None]
  - Stress [None]
  - Medical device complication [None]
  - Embedded device [None]
  - Premature rupture of membranes [None]
  - Anhedonia [None]
  - General physical health deterioration [None]
  - Pregnancy with contraceptive device [None]
  - Procedural pain [None]
  - Dehydration [None]
  - Off label use of device [None]
  - Emotional distress [None]
  - Postpartum depression [None]

NARRATIVE: CASE EVENT DATE: 201312
